FAERS Safety Report 8603618-5 (Version None)
Quarter: 2012Q3

REPORT INFORMATION
  Report Type: 
  Country: None (occurrence: None)
  Receive Date: 20120817
  Receipt Date: 20120808
  Transmission Date: 20120928
  Serious: Yes (Hospitalization)
  Sender: FDA-Public Use
  Company Number: ES-ASTRAZENECA-2012SE26971

PATIENT
  Age: 83 Year
  Sex: Male

DRUGS (1)
  1. OMEPRAZOLE [Suspect]
     Route: 048

REACTIONS (5)
  - DISORIENTATION [None]
  - ASTHENIA [None]
  - HYPOMAGNESAEMIA [None]
  - MUSCULAR WEAKNESS [None]
  - VOMITING [None]
